FAERS Safety Report 20152336 (Version 1)
Quarter: 2021Q4

REPORT INFORMATION
  Report Type: Spontaneous
  Country: MX (occurrence: MX)
  Receive Date: 20211206
  Receipt Date: 20211206
  Transmission Date: 20220303
  Serious: Yes (Hospitalization, Other)
  Sender: FDA-Public Use
  Company Number: MX-PFIZER INC-202101655077

PATIENT
  Age: 52 Year
  Sex: Female

DRUGS (1)
  1. IBRANCE [Suspect]
     Active Substance: PALBOCICLIB
     Dosage: 100 MG, 1X/DAY
     Route: 048
     Dates: start: 20210809

REACTIONS (4)
  - Lower limb fracture [Unknown]
  - Impaired healing [Unknown]
  - Blood sodium decreased [Unknown]
  - Mineral deficiency [Unknown]

NARRATIVE: CASE EVENT DATE: 20210101
